FAERS Safety Report 9272610 (Version 1)
Quarter: 2013Q2

REPORT INFORMATION
  Report Type: Spontaneous
  Country: US (occurrence: US)
  Receive Date: 20130506
  Receipt Date: 20130506
  Transmission Date: 20140414
  Serious: No
  Sender: FDA-Public Use
  Company Number: US-ASTRAZENECA-2013SE01761

PATIENT
  Sex: Female

DRUGS (2)
  1. PRILOSEC OTC [Suspect]
     Route: 048
     Dates: start: 20121231, end: 20121231
  2. DIUREX [Interacting]
     Dosage: UNKNOWN

REACTIONS (3)
  - Drug interaction [Unknown]
  - Intentional drug misuse [Unknown]
  - Vomiting [Recovered/Resolved]
